FAERS Safety Report 18678033 (Version 3)
Quarter: 2021Q2

REPORT INFORMATION
  Report Type: Spontaneous
  Country: US (occurrence: US)
  Receive Date: 20201229
  Receipt Date: 20210525
  Transmission Date: 20210717
  Serious: No
  Sender: FDA-Public Use
  Company Number: US-PFIZER INC-2020500601

PATIENT
  Age: 58 Year
  Sex: Female
  Weight: 70.31 kg

DRUGS (1)
  1. ESTRING [Suspect]
     Active Substance: ESTRADIOL
     Indication: VULVOVAGINAL DRYNESS
     Dosage: 2 MG (INSERT FOR 90 DAYS THEN REMOVE)
     Route: 067
     Dates: start: 202011

REACTIONS (6)
  - Device placement issue [Unknown]
  - Product use complaint [Unknown]
  - Tearfulness [Unknown]
  - Device use issue [Unknown]
  - Product dose omission issue [Unknown]
  - Micturition urgency [Unknown]

NARRATIVE: CASE EVENT DATE: 2020
